FAERS Safety Report 8860590 (Version 3)
Quarter: 2013Q2

REPORT INFORMATION
  Report Type: Spontaneous
  Country: US (occurrence: US)
  Receive Date: 20121025
  Receipt Date: 20130408
  Transmission Date: 20140414
  Serious: Yes (Hospitalization, Disabling)
  Sender: FDA-Public Use
  Company Number: US-UCBSA-025282

PATIENT
  Age: 64 Year
  Sex: Female

DRUGS (26)
  1. CIMZIA [Suspect]
     Indication: COLITIS ULCERATIVE
     Route: 058
     Dates: start: 20100624, end: 20101021
  2. ASACOL [Concomitant]
     Dates: start: 20080715, end: 2008
  3. ASACOL [Concomitant]
     Dates: start: 20080814, end: 2008
  4. ASACOL [Concomitant]
     Dosage: 12 PER DAY
     Dates: start: 20081010, end: 2008
  5. ASACOL [Concomitant]
     Dosage: 4.8
     Dates: start: 20081208, end: 2008
  6. ASACOL [Concomitant]
     Dates: start: 20090611
  7. ASACOL [Concomitant]
     Dates: start: 20101007
  8. IMURAN [Concomitant]
     Dosage: LOW DOSE
     Dates: start: 20080910, end: 2008
  9. IMURAN [Concomitant]
     Dates: start: 20081106, end: 2008
  10. IMURAN [Concomitant]
     Dates: start: 20081208, end: 2008
  11. FERROUS SULFATE [Concomitant]
  12. FOSAMAX [Concomitant]
     Route: 048
  13. NIFEREX 150 FORTE [Concomitant]
     Dosage: 50-100 MG
     Route: 048
  14. PREDNISONE [Concomitant]
     Dosage: 50MG
     Dates: start: 200807
  15. PREDNISONE [Concomitant]
     Dosage: 20MG
     Dates: start: 200812, end: 200902
  16. PREDNISONE [Concomitant]
     Dosage: 15MG
     Dates: start: 201006
  17. PREDNISONE [Concomitant]
     Dates: start: 201008
  18. ALBUMIN [Concomitant]
  19. COUMADIN [Concomitant]
     Dosage: STRENGTH: 3 MG
     Route: 048
  20. PRILOSEC [Concomitant]
     Dosage: 1 CAPSULE BEFORE DINNER
     Route: 048
  21. SODIUM BICARBONATE [Concomitant]
     Route: 048
  22. LORTAB [Concomitant]
     Indication: PAIN
     Dosage: 7.5-500 MG, 1-2 TABLETS EVERY 3 HOURS
     Route: 048
  23. ASPIRIN [Concomitant]
     Route: 048
  24. REGLAN [Concomitant]
     Dosage: WITH MEALS
     Route: 048
  25. BENADRYL [Concomitant]
     Route: 048
  26. METOPROLOL [Concomitant]
     Route: 048

REACTIONS (24)
  - Nausea [Recovered/Resolved]
  - Vomiting [Recovered/Resolved]
  - Dehydration [Recovered/Resolved]
  - Cardiac failure [Recovering/Resolving]
  - Necrosis ischaemic [Recovering/Resolving]
  - Acute respiratory distress syndrome [Recovering/Resolving]
  - Colitis ulcerative [Recovering/Resolving]
  - Sepsis [Recovering/Resolving]
  - Anaemia [Recovering/Resolving]
  - Clostridium difficile infection [Recovering/Resolving]
  - Hepatitis cholestatic [Recovering/Resolving]
  - Rhabdomyolysis [Recovering/Resolving]
  - Hydronephrosis [Recovering/Resolving]
  - Faecaloma [Recovered/Resolved]
  - Disseminated intravascular coagulation [Recovering/Resolving]
  - Pulmonary arterial pressure increased [Recovering/Resolving]
  - Nephrolithiasis [Recovering/Resolving]
  - Renal failure acute [Recovered/Resolved]
  - Thrombocytopenia [Recovering/Resolving]
  - Asthenia [Recovering/Resolving]
  - Pruritus generalised [Recovered/Resolved]
  - Dysphagia [Recovered/Resolved]
  - Hypothermia [Recovering/Resolving]
  - Rash erythematous [Recovering/Resolving]
